FAERS Safety Report 5314966-9 (Version None)
Quarter: 2007Q2

REPORT INFORMATION
  Report Type: 
  Country: None (occurrence: None)
  Receive Date: 20070502
  Receipt Date: 20070420
  Transmission Date: 20071010
  Serious: Yes (Other)
  Sender: FDA-Public Use
  Company Number: DK-ELI_LILLY_AND_COMPANY-DK200701002388

PATIENT
  Age: 54 Year
  Sex: Female
  Weight: 74 kg

DRUGS (2)
  1. DULOXETINE HYDROCHLORIDE [Suspect]
     Indication: DEPRESSION
     Dosage: 30 MG, DAILY (1/D)
     Route: 065
     Dates: start: 20060309, end: 20060604
  2. CITALOPRAM HYDROBROMIDE [Concomitant]
     Indication: DEPRESSION
     Dates: start: 20051107, end: 20060901

REACTIONS (8)
  - AMNESIA [None]
  - BITE [None]
  - CONTUSION [None]
  - CONVULSION [None]
  - DIZZINESS [None]
  - FALL [None]
  - HAEMORRHAGE [None]
  - TOOTH INJURY [None]
